FAERS Safety Report 6252777-0 (Version None)
Quarter: 2009Q3

REPORT INFORMATION
  Report Type: 
  Country: None (occurrence: None)
  Receive Date: 20090701
  Receipt Date: 20090622
  Transmission Date: 20100115
  Serious: Yes (Hospitalization)
  Sender: FDA-Public Use
  Company Number: US-NOVOPROD-286242

PATIENT
  Sex: Female

DRUGS (14)
  1. NOVOLOG MIX 70/30 [Suspect]
     Indication: INSULIN-REQUIRING TYPE 2 DIABETES MELLITUS
     Dosage: 60 IU, BID
     Route: 058
     Dates: start: 20080801, end: 20090303
  2. NOVOLOG MIX 70/30 [Suspect]
     Dosage: 50 IU, BID
     Route: 058
     Dates: start: 20090304
  3. NOVOLOG MIX 70/30 [Suspect]
     Dosage: 45 IU, BID
     Route: 058
     Dates: start: 20090319
  4. NOVOLOG [Suspect]
     Indication: INSULIN-REQUIRING TYPE 2 DIABETES MELLITUS
     Dosage: 8 IU, QD
     Route: 058
     Dates: start: 20080801
  5. NOVOLOG [Suspect]
     Indication: INSULIN-REQUIRING TYPE 2 DIABETES MELLITUS
     Route: 058
     Dates: start: 20090401, end: 20090401
  6. NOVOLIN R [Suspect]
     Indication: INSULIN-REQUIRING TYPE 2 DIABETES MELLITUS
     Dosage: PRN
     Route: 058
     Dates: start: 20080101
  7. PROTONIX                           /01263201/ [Concomitant]
     Indication: HERNIA
     Dosage: 40 MG, QD
  8. CLONIDINE [Concomitant]
     Dosage: 1 UNK, QD
  9. AVALIDE [Concomitant]
     Indication: HYPERTENSION
  10. PLAVIX [Concomitant]
  11. ASPIRIN [Concomitant]
     Dosage: 325 MG, QD
  12. SINGULAIR [Concomitant]
     Indication: ASTHMA
     Dosage: 10 MG, QD
  13. STOOL SOFTENER [Concomitant]
     Dosage: UNK, QD
  14. ATIVAN [Concomitant]
     Indication: HYPERTENSION
     Dosage: UNK, BID

REACTIONS (5)
  - BLOOD GLUCOSE FLUCTUATION [None]
  - BRONCHITIS [None]
  - DIVERTICULITIS [None]
  - EXPIRED DRUG ADMINISTERED [None]
  - WRONG DRUG ADMINISTERED [None]
